FAERS Safety Report 8015340-7 (Version None)
Quarter: 2011Q4

REPORT INFORMATION
  Report Type: 
  Country: None (occurrence: None)
  Receive Date: 20111223
  Receipt Date: 20111220
  Transmission Date: 20120403
  Serious: Yes (Death)
  Sender: FDA-Public Use
  Company Number: KAD201108-000006

PATIENT
  Age: 59 Year
  Sex: Female

DRUGS (2)
  1. PEGINTERFERON ALFA-2B [Suspect]
     Dosage: 80 MICROGRAM ONCE A WEEK, SUBCUTANEOUS
     Route: 058
     Dates: start: 20090201
  2. RIBAVIRIN [Suspect]
     Indication: HEPATITIS C
     Dosage: 600MG/DAY TWICE DAILY, ORAL
     Route: 048
     Dates: start: 20090201

REACTIONS (21)
  - MEDIASTINAL ABSCESS [None]
  - RENAL ABSCESS [None]
  - ADRENAL GLAND ABSCESS [None]
  - THROMBOCYTOPENIA [None]
  - HYPOALBUMINAEMIA [None]
  - SOMNOLENCE [None]
  - BLOOD PH DECREASED [None]
  - PLEURAL EFFUSION [None]
  - BACTERIAL INFECTION [None]
  - ACTIVATED PARTIAL THROMBOPLASTIN TIME PROLONGED [None]
  - AZOTAEMIA [None]
  - MOUTH HAEMORRHAGE [None]
  - BLOOD PRESSURE DECREASED [None]
  - PALLOR [None]
  - SEPTIC SHOCK [None]
  - INTERNATIONAL NORMALISED RATIO INCREASED [None]
  - STAPHYLOCOCCAL INFECTION [None]
  - DEPRESSED LEVEL OF CONSCIOUSNESS [None]
  - SKIN TURGOR DECREASED [None]
  - PROTHROMBIN TIME PROLONGED [None]
  - PURPURA [None]
